FAERS Safety Report 10133341 (Version 2)
Quarter: 2014Q2

REPORT INFORMATION
  Report Type: Spontaneous
  Country: SK (occurrence: SK)
  Receive Date: 20140428
  Receipt Date: 20140602
  Transmission Date: 20141212
  Serious: Yes (Hospitalization)
  Sender: FDA-Public Use
  Company Number: SK-GLAXOSMITHKLINE-B0982968A

PATIENT
  Age: 59 Year
  Sex: Female

DRUGS (5)
  1. BENLYSTA [Suspect]
     Indication: SYSTEMIC LUPUS ERYTHEMATOSUS
     Route: 065
     Dates: start: 201304, end: 201404
  2. PREDNISOLONE [Concomitant]
     Dates: start: 200609
  3. AZATHIOPRINE [Concomitant]
     Dates: start: 200704
  4. HYDROXYCHLOROQUINE [Concomitant]
     Dates: start: 200912
  5. IBANDRONIC ACID [Concomitant]
     Dosage: 150MG MONTHLY
     Route: 048
     Dates: start: 201305

REACTIONS (5)
  - Pneumonia [Recovered/Resolved]
  - Herpes zoster [Recovering/Resolving]
  - Back pain [Unknown]
  - Osteoporosis [Unknown]
  - Lumbar vertebral fracture [Unknown]
